FAERS Safety Report 18990461 (Version 1)
Quarter: 2021Q1

REPORT INFORMATION
  Report Type: Spontaneous
  Country: CN (occurrence: CN)
  Receive Date: 20210310
  Receipt Date: 20210310
  Transmission Date: 20210420
  Serious: Yes (Other)
  Sender: FDA-Public Use
  Company Number: CN-ASTRAZENECA-2021A094642

PATIENT
  Age: 63 Year
  Sex: Female

DRUGS (1)
  1. OSIMERTINIB. [Suspect]
     Active Substance: OSIMERTINIB
     Indication: LUNG NEOPLASM MALIGNANT
     Route: 048
     Dates: start: 201703

REACTIONS (5)
  - Neoplasm progression [Recovering/Resolving]
  - Off label use [Unknown]
  - Drug resistance [Unknown]
  - Pleural effusion [Recovering/Resolving]
  - Acquired gene mutation [Unknown]
